FAERS Safety Report 6244390-6 (Version None)
Quarter: 2009Q2

REPORT INFORMATION
  Report Type: 
  Country: None (occurrence: None)
  Receive Date: 20090625
  Receipt Date: 20090618
  Transmission Date: 20091009
  Serious: Yes (Death, Hospitalization, Other)
  Sender: FDA-Public Use
  Company Number: PHHY2008JP31619

PATIENT
  Sex: Female
  Weight: 75 kg

DRUGS (27)
  1. EXJADE [Suspect]
     Indication: IRON OVERLOAD
     Dosage: 1000 MG, QD
     Route: 048
     Dates: start: 20081001, end: 20081017
  2. BLOOD TRANSFUSION, AUXILIARY PRODUCTS [Concomitant]
     Dosage: UNK
  3. PLATELETS [Concomitant]
     Dosage: 10 UNITS EVERY THREE DAYS
     Dates: start: 20080929, end: 20081008
  4. PLATELETS [Concomitant]
     Dosage: 10 UNITS EVERY THREE DAYS
     Dates: start: 20081010, end: 20081015
  5. PLATELETS [Concomitant]
     Dosage: 10 UNITS ON ALTERNATE DAYS
     Dates: start: 20081017, end: 20081024
  6. OMEGACIN [Concomitant]
     Indication: LIVER DISORDER
     Dosage: 0.6 G, UNK
     Route: 042
     Dates: start: 20080924, end: 20080925
  7. SULPERAZON [Concomitant]
     Indication: LIVER DISORDER
     Dosage: 2.0 G, UNK
     Route: 042
     Dates: start: 20080925, end: 20081003
  8. MEROPEN [Concomitant]
     Dosage: 0.2 G, UNK
     Route: 041
     Dates: start: 20081008, end: 20081011
  9. FUNGUARD [Concomitant]
     Indication: LIVER DISORDER
     Dosage: 300 MG, UNK
     Route: 041
     Dates: start: 20081008
  10. ZYVOX [Concomitant]
     Indication: LIVER DISORDER
     Dosage: 1200 MG, UNK
     Route: 041
     Dates: start: 20081011, end: 20081016
  11. TARGOCID [Concomitant]
     Indication: LIVER DISORDER
     Dosage: 800 MG, UNK
     Route: 041
     Dates: start: 20081017, end: 20081020
  12. GRAN [Concomitant]
     Indication: APLASTIC ANAEMIA
     Dosage: 300 UG, UNK
     Route: 042
     Dates: start: 20080927
  13. TAZOCIN [Concomitant]
     Indication: LIVER DISORDER
     Dosage: 5 G, UNK
     Route: 042
     Dates: start: 20080918, end: 20080921
  14. MAXIPIME [Concomitant]
     Indication: LIVER DISORDER
     Dosage: 4 G
     Route: 042
     Dates: start: 20080921, end: 20080921
  15. CIPROXAN [Concomitant]
     Indication: LIVER DISORDER
     Dosage: 600 MG, UNK
     Route: 041
     Dates: start: 20080921, end: 20080922
  16. AMIKAMYCIN [Concomitant]
     Indication: LIVER DISORDER
     Dosage: 400 MG, UNK
     Route: 042
     Dates: start: 20080918, end: 20080924
  17. VENOGLOBULIN [Concomitant]
     Indication: LIVER DISORDER
     Dosage: 5 G, UNK
     Route: 042
     Dates: start: 20080918
  18. VENOGLOBULIN [Concomitant]
     Dosage: 2.5 G, UNK
     Route: 042
     Dates: end: 20080920
  19. ALBUMIN (HUMAN) [Concomitant]
     Indication: LIVER DISORDER
     Dosage: 50 ML, UNK
     Dates: start: 20080919, end: 20080921
  20. FUROSEMIDE [Concomitant]
     Indication: LIVER DISORDER
     Dosage: 1 DF, UNK
     Route: 042
     Dates: start: 20080919, end: 20080921
  21. BARACLUDE [Concomitant]
     Indication: LIVER DISORDER
     Dosage: 0.5 MG, UNK
     Route: 048
     Dates: start: 20080924, end: 20081017
  22. ITRIZOLE [Concomitant]
     Indication: FUNGAL INFECTION
     Dosage: 200 MG, UNK
     Route: 048
     Dates: start: 20080926
  23. ALLEGRA [Concomitant]
     Indication: ALLERGY PROPHYLAXIS
     Dosage: 120 MG, UNK
     Route: 048
     Dates: start: 20080926
  24. PREDNISOLONE [Concomitant]
     Indication: IRON OVERLOAD
     Dosage: 40 MG, UNK
     Dates: start: 20080923
  25. PREDNISOLONE [Concomitant]
     Dosage: 30 MG, UNK
     Route: 042
  26. PREDNISOLONE [Concomitant]
     Dosage: 20 MG, UNK
     Route: 042
     Dates: end: 20081013
  27. PREDNISOLONE [Concomitant]
     Dosage: 15 MG, UNK
     Route: 048
     Dates: start: 20081014, end: 20081017

REACTIONS (8)
  - APLASTIC ANAEMIA [None]
  - CONDITION AGGRAVATED [None]
  - DEPRESSED LEVEL OF CONSCIOUSNESS [None]
  - DIARRHOEA [None]
  - DISEASE PROGRESSION [None]
  - GENERAL PHYSICAL HEALTH DETERIORATION [None]
  - HAEMOGLOBIN DECREASED [None]
  - STAPHYLOCOCCAL SEPSIS [None]
